FAERS Safety Report 8177336-4 (Version None)
Quarter: 2012Q1

REPORT INFORMATION
  Report Type: 
  Country: None (occurrence: None)
  Receive Date: 20120301
  Receipt Date: 20120227
  Transmission Date: 20120608
  Serious: Yes (Hospitalization)
  Sender: FDA-Public Use
  Company Number: CH-ROCHE-1016606

PATIENT
  Sex: Female
  Weight: 90 kg

DRUGS (5)
  1. MABTHERA [Suspect]
     Indication: DIFFUSE LARGE B-CELL LYMPHOMA
     Dosage: VOLUME OF LAST RITUXIMAB TAKEN: 758 ML, DOSE CONCENTRATION OF LAST DOSE: 1 MG/ML, DATE OF LAST DOSE
     Route: 042
     Dates: start: 20111111
  2. PREDNISOLONE [Suspect]
     Indication: DIFFUSE LARGE B-CELL LYMPHOMA
     Dosage: LAST DOSE TAKEN: 100 MG, DATE OF LAST DOSE PRIOR TO EVENT: 11/NOV/2011
     Route: 048
     Dates: start: 20111111
  3. DOXORUBICIN HYDROCHLORIDE [Suspect]
     Indication: DIFFUSE LARGE B-CELL LYMPHOMA
     Dosage: LAST DOSE TAKEN: 100 MG, DATE OF LAST DOSE PRIOR TO EVENT: 11/NOV/2011
     Route: 042
     Dates: start: 20111111
  4. CYCLOPHOSPHAMIDE [Suspect]
     Indication: DIFFUSE LARGE B-CELL LYMPHOMA
     Dosage: LAST DOSE TAKEN: 1500 MG, DATE OF LAST DOSE PRIOR TO EVENT: 11/NOV/2011
     Route: 042
     Dates: start: 20111111
  5. VINCRISTINE [Suspect]
     Indication: DIFFUSE LARGE B-CELL LYMPHOMA
     Dosage: LAST DOSE TAKEN: 2 MG, DATE OF LAST DOSE PRIOR TO EVENT: 11/NOV/2011
     Route: 042
     Dates: start: 20111111

REACTIONS (1)
  - CHOLECYSTITIS ACUTE [None]
